FAERS Safety Report 6695991-2 (Version None)
Quarter: 2010Q2

REPORT INFORMATION
  Report Type: 
  Country: None (occurrence: None)
  Receive Date: 20100426
  Receipt Date: 20100412
  Transmission Date: 20101027
  Serious: Yes (Other)
  Sender: FDA-Public Use
  Company Number: US-ASTRAZENECA-2009UW17383

PATIENT
  Age: 59 Year
  Sex: Male
  Weight: 81.6 kg

DRUGS (11)
  1. SEROQUEL [Suspect]
     Indication: AFFECTIVE DISORDER
     Route: 048
     Dates: start: 20020101
  2. SEROQUEL [Suspect]
     Route: 048
     Dates: start: 20081201
  3. CLONAZEPAM [Concomitant]
     Indication: ANXIETY
     Route: 048
     Dates: start: 20020101
  4. CLONAZEPAM [Concomitant]
     Route: 048
     Dates: start: 20081201
  5. DOXEPIN HCL [Concomitant]
     Indication: SLEEP DISORDER
     Route: 048
     Dates: start: 20020201
  6. DOXEPIN HCL [Concomitant]
     Route: 048
     Dates: start: 20081201
  7. LISINOPRIL [Concomitant]
     Indication: BLOOD PRESSURE
     Dosage: 10 MG ONE-HALF TABLET BY MOUTH ONE TIME EACH DAY
     Route: 048
     Dates: start: 20081201
  8. LIPITOR [Concomitant]
     Dates: start: 20020101
  9. REMERON [Concomitant]
     Dates: start: 20020101
  10. FLEXERIL [Concomitant]
     Indication: MUSCLE SPASMS
     Dates: start: 20020101
  11. LORAZEPAM [Concomitant]
     Indication: MUSCLE SPASMS
     Dates: start: 20020101

REACTIONS (2)
  - NEUROPATHY PERIPHERAL [None]
  - TYPE 2 DIABETES MELLITUS [None]
